FAERS Safety Report 23815106 (Version 6)
Quarter: 2024Q4

REPORT INFORMATION
  Report Type: Spontaneous
  Country: US (occurrence: US)
  Receive Date: 20240503
  Receipt Date: 20241009
  Transmission Date: 20250115
  Serious: No
  Sender: PFIZER
  Company Number: US-PFIZER INC-202400097687

PATIENT
  Age: 10 Year
  Sex: Male
  Weight: 27.211 kg

DRUGS (1)
  1. GENOTROPIN [Suspect]
     Active Substance: SOMATROPIN
     Indication: Blood growth hormone decreased
     Dosage: 1.3 MILLIGRAMS PER DAY, INTRAMUSCULAR, ONCE A DAY, INJECTION
     Route: 030

REACTIONS (9)
  - Injection site pain [Unknown]
  - Injection site bruising [Unknown]
  - Incorrect route of product administration [Unknown]
  - Drug dose omission by device [Unknown]
  - Product preparation issue [Unknown]
  - Device issue [Unknown]
  - Device leakage [Unknown]
  - Device mechanical issue [Unknown]
  - Device breakage [Unknown]
